FAERS Safety Report 21902002 (Version 4)
Quarter: 2023Q4

REPORT INFORMATION
  Report Type: Report from Study
  Country: ZA (occurrence: ZA)
  Receive Date: 20230124
  Receipt Date: 20231123
  Transmission Date: 20240110
  Serious: Yes (Other)
  Sender: FDA-Public Use
  Company Number: ZA-CELLTRION INC.-2021ZA001514

PATIENT

DRUGS (8)
  1. INFLIXIMAB [Suspect]
     Active Substance: INFLIXIMAB
     Indication: Crohn^s disease
     Dosage: 420 MG
     Route: 042
     Dates: start: 20210119
  2. INFLIXIMAB [Suspect]
     Active Substance: INFLIXIMAB
     Dosage: 420 MG, 0, 2, 6 WEEKS
     Route: 042
     Dates: start: 20210119, end: 20230110
  3. INFLIXIMAB [Suspect]
     Active Substance: INFLIXIMAB
     Dosage: 500 MG, EVERY 8 WEEKLY INTERVALS
     Route: 042
     Dates: start: 20231108
  4. PREDNISONE [Concomitant]
     Active Substance: PREDNISONE
     Indication: Crohn^s disease
     Dosage: 60 MG, DAILY
     Route: 048
  5. PREDNISONE [Concomitant]
     Active Substance: PREDNISONE
     Dosage: 40 MG, DAILY
     Route: 048
  6. AZATHIOPRINE [Concomitant]
     Active Substance: AZATHIOPRINE
     Indication: Crohn^s disease
     Dosage: RESTARTED ON AZATHIOPRINE 200MG FROM MAY 2020.
     Dates: start: 202005
  7. AZATHIOPRINE [Concomitant]
     Active Substance: AZATHIOPRINE
     Dosage: 200 MG, DAILY
     Route: 048
     Dates: start: 202006
  8. ASACOL [Concomitant]
     Active Substance: MESALAMINE

REACTIONS (5)
  - Crohn^s disease [Unknown]
  - Erythema [Recovered/Resolved]
  - Fatigue [Recovered/Resolved]
  - Underdose [Unknown]
  - Overdose [Unknown]

NARRATIVE: CASE EVENT DATE: 20210120
